FAERS Safety Report 20364059 (Version 7)
Quarter: 2022Q4

REPORT INFORMATION
  Report Type: Spontaneous
  Country: US (occurrence: US)
  Receive Date: 20220121
  Receipt Date: 20221021
  Transmission Date: 20230113
  Serious: No
  Sender: FDA-Public Use
  Company Number: US-PFIZER INC-2019154526

PATIENT
  Age: 66 Year
  Sex: Female
  Weight: 82 kg

DRUGS (6)
  1. XELJANZ [Suspect]
     Active Substance: TOFACITINIB CITRATE
     Indication: Eosinophilia
     Dosage: 5 MG, 2X/DAY (ONE TABLET IN THE MORNING AND ONE IN THE EVENING BY MOUTH)
     Route: 048
     Dates: start: 201902, end: 202112
  2. XELJANZ [Suspect]
     Active Substance: TOFACITINIB CITRATE
     Indication: Hypereosinophilic syndrome
  3. XELJANZ [Suspect]
     Active Substance: TOFACITINIB CITRATE
     Indication: Pemphigoid
  4. ALBUTEROL [Concomitant]
     Active Substance: ALBUTEROL
     Indication: Asthma
     Dosage: UNK
  5. GABAPENTIN [Concomitant]
     Active Substance: GABAPENTIN
     Indication: Pruritus
     Dosage: UNK
  6. GABAPENTIN [Concomitant]
     Active Substance: GABAPENTIN
     Indication: Discomfort

REACTIONS (6)
  - Off label use [Unknown]
  - Therapeutic response unexpected [Unknown]
  - Product dose omission issue [Unknown]
  - Blood pressure abnormal [Unknown]
  - Blister [Unknown]
  - Pruritus [Unknown]

NARRATIVE: CASE EVENT DATE: 20190201
